FAERS Safety Report 20900429 (Version 1)
Quarter: 2022Q2

REPORT INFORMATION
  Report Type: Spontaneous
  Country: US (occurrence: None)
  Receive Date: 20220531
  Receipt Date: 20220531
  Transmission Date: 20220721
  Serious: Yes (Other)
  Sender: FDA-Public Use
  Company Number: None

PATIENT
  Age: 86 Year
  Sex: Female
  Weight: 98.1 kg

DRUGS (23)
  1. ZILRETTA [Suspect]
     Active Substance: TRIAMCINOLONE ACETONIDE
     Indication: Arthralgia
     Dosage: OTHER ROUTE : INJECTION;?
     Route: 058
     Dates: start: 20220503, end: 20220503
  2. ATENOLOL [Concomitant]
     Active Substance: ATENOLOL
  3. NITRO OITMENT [Concomitant]
  4. XARELTO [Concomitant]
     Active Substance: RIVAROXABAN
  5. BREO ELLIPTA [Concomitant]
     Active Substance: FLUTICASONE FUROATE\VILANTEROL TRIFENATATE
  6. XANAX [Concomitant]
     Active Substance: ALPRAZOLAM
  7. ALBUTERNOL HFA [Concomitant]
  8. PEPCID [Concomitant]
     Active Substance: FAMOTIDINE
  9. TRAMADOL HCL [Concomitant]
     Active Substance: TRAMADOL HYDROCHLORIDE
  10. KLOR-CON [Concomitant]
     Active Substance: POTASSIUM CHLORIDE
  11. TORSEMIDE [Concomitant]
     Active Substance: TORSEMIDE
  12. PROLIA [Concomitant]
     Active Substance: DENOSUMAB
  13. B-PAP W/BI FLEX [Concomitant]
  14. OXYGEN [Concomitant]
     Active Substance: OXYGEN
  15. COVID-19 VACCINE [Concomitant]
  16. VITAMIN D [Concomitant]
     Active Substance: VITAMIN D NOS
  17. MAGNESIUM [Concomitant]
     Active Substance: MAGNESIUM
  18. POTASSIUM GLUCONATE [Concomitant]
     Active Substance: POTASSIUM GLUCONATE
  19. KRILL OIL [Concomitant]
     Active Substance: DIETARY SUPPLEMENT\KRILL OIL
  20. C WITH ROSE HIPS [Concomitant]
  21. LUTEIN W.ZEAXANTHIN [Concomitant]
  22. CALCIUM [Concomitant]
     Active Substance: CALCIUM
  23. VITAMIN B COMPLEX [Concomitant]
     Active Substance: CYANOCOBALAMIN\DEXPANTHENOL\NIACINAMIDE\PYRIDOXINE HYDROCHLORIDE\RIBOFLAVIN 5^-PHOSPHATE SODIUM\THIA

REACTIONS (11)
  - Rash [None]
  - Rash [None]
  - Vision blurred [None]
  - Orbital oedema [None]
  - Gastrointestinal disorder [None]
  - Abdominal discomfort [None]
  - Nausea [None]
  - Dizziness [None]
  - Blood pressure increased [None]
  - Feeling jittery [None]
  - Visual impairment [None]

NARRATIVE: CASE EVENT DATE: 20220504
